FAERS Safety Report 8005406-X (Version None)
Quarter: 2011Q4

REPORT INFORMATION
  Report Type: 
  Country: None (occurrence: None)
  Receive Date: 20111223
  Receipt Date: 20111220
  Transmission Date: 20120403
  Serious: Yes (Hospitalization)
  Sender: FDA-Public Use
  Company Number: SE-NAPPMUNDI-GBR-2011-0009261

PATIENT
  Sex: Male

DRUGS (12)
  1. LACTULOSE [Concomitant]
     Dosage: UNK
  2. NIFEREX                            /00198301/ [Concomitant]
     Dosage: UNK
  3. METOPROLOL SUCCINATE [Concomitant]
     Dosage: UNK
  4. MORPHINE SULFATE [Suspect]
     Indication: BLADDER CANCER
     Dosage: 10 MG, PRN
     Route: 048
     Dates: start: 20110205, end: 20111116
  5. MORPHINE SULFATE [Suspect]
     Indication: BLADDER CANCER
     Dosage: UNK
     Route: 048
     Dates: start: 20110204, end: 20111116
  6. ALVEDON [Concomitant]
     Dosage: UNK
  7. ASPIRIN [Concomitant]
     Dosage: UNK
  8. PREDNISOLONE [Concomitant]
     Dosage: UNK
  9. OMEPRAZOLE [Concomitant]
     Dosage: UNK
  10. ENALAPRIL MALEATE [Concomitant]
     Dosage: UNK
  11. LAXOBERAL [Concomitant]
     Dosage: UNK
     Route: 048
  12. NITROMEX [Concomitant]
     Dosage: UNK
     Route: 060

REACTIONS (3)
  - OVERDOSE [None]
  - MYOCLONUS [None]
  - HYPERAESTHESIA [None]
